FAERS Safety Report 19714308 (Version 1)
Quarter: 2021Q3

REPORT INFORMATION
  Report Type: Spontaneous
  Country: US (occurrence: US)
  Receive Date: 20210818
  Receipt Date: 20210818
  Transmission Date: 20211014
  Serious: No
  Sender: FDA-Public Use
  Company Number: None

PATIENT
  Age: 71 Year
  Sex: Male

DRUGS (6)
  1. ZINC. [Concomitant]
     Active Substance: ZINC
  2. AMLODIPINE [Suspect]
     Active Substance: AMLODIPINE BESYLATE
     Indication: BLOOD PRESSURE MEASUREMENT
  3. ADULT OVER 50 MULTI VITAMIN [Concomitant]
  4. ADVAIR HFA [Concomitant]
     Active Substance: FLUTICASONE PROPIONATE\SALMETEROL XINAFOATE
  5. ALBUTERAL [Concomitant]
     Active Substance: ALBUTEROL
  6. GLUCOSAMINE [Concomitant]
     Active Substance: GLUCOSAMINE

REACTIONS (3)
  - Joint swelling [None]
  - Peripheral swelling [None]
  - Arthralgia [None]
